FAERS Safety Report 12596866 (Version 1)
Quarter: 2016Q3

REPORT INFORMATION
  Report Type: Spontaneous
  Country: FR (occurrence: FR)
  Receive Date: 20160726
  Receipt Date: 20160726
  Transmission Date: 20161109
  Serious: Yes (Other)
  Sender: FDA-Public Use
  Company Number: FR-TEVA-679537ISR

PATIENT
  Age: 22 Year
  Sex: Female

DRUGS (3)
  1. LEELOO 0,1 MG/0,02 MG, COMPRIM? ENROB? [Suspect]
     Active Substance: ETHINYL ESTRADIOL\LEVONORGESTREL
     Indication: METRORRHAGIA
     Dosage: 1 DOSAGE FORMS DAILY; 1 DOSAGE FORM= 0.02 MG ETHINYLESTRADIOL + 0.1 MG LEVONORGESTREL
     Route: 048
     Dates: start: 20160523, end: 20160707
  2. NEXPLANON [Suspect]
     Active Substance: ETONOGESTREL
     Indication: CONTRACEPTION
     Route: 058
     Dates: start: 2014
  3. ABILIFY [Concomitant]
     Active Substance: ARIPIPRAZOLE

REACTIONS (1)
  - Arthralgia [Not Recovered/Not Resolved]

NARRATIVE: CASE EVENT DATE: 201606
